FAERS Safety Report 25980916 (Version 1)
Quarter: 2025Q4

REPORT INFORMATION
  Report Type: Spontaneous
  Country: EU (occurrence: EU)
  Receive Date: 20251030
  Receipt Date: 20251030
  Transmission Date: 20260118
  Serious: Yes (Other)
  Sender: GILEAD
  Company Number: EU-GILEAD-2025-0733308

PATIENT
  Age: 33 Year
  Sex: Female

DRUGS (1)
  1. TRODELVY [Suspect]
     Active Substance: SACITUZUMAB GOVITECAN-HZIY
     Indication: Breast neoplasm
     Dosage: 5 CYCLES
     Route: 065

REACTIONS (2)
  - Metastases to liver [Unknown]
  - Neutropenia [Unknown]
